FAERS Safety Report 16637365 (Version 1)
Quarter: 2019Q3

REPORT INFORMATION
  Report Type: Spontaneous
  Country: US (occurrence: US)
  Receive Date: 20190726
  Receipt Date: 20190726
  Transmission Date: 20191004
  Serious: No
  Sender: FDA-Public Use
  Company Number: US-PERRIGO-19US006525

PATIENT
  Age: 81 Year
  Sex: Female
  Weight: 53.52 kg

DRUGS (1)
  1. MINOXIDIL. [Suspect]
     Active Substance: MINOXIDIL
     Indication: ALOPECIA
     Dosage: 1 ML, BID
     Route: 061
     Dates: start: 20190312, end: 20190523

REACTIONS (5)
  - Off label use [Recovered/Resolved]
  - Hypertrichosis [Unknown]
  - Application site pruritus [Unknown]
  - Hair colour changes [Unknown]
  - Drug ineffective [Unknown]

NARRATIVE: CASE EVENT DATE: 2019
